FAERS Safety Report 6138780-X (Version None)
Quarter: 2009Q1

REPORT INFORMATION
  Report Type: 
  Country: None (occurrence: None)
  Receive Date: 20090327
  Receipt Date: 20090319
  Transmission Date: 20090719
  Serious: Yes (Hospitalization)
  Sender: FDA-Public Use
  Company Number: 2009SP000781

PATIENT
  Age: 68 Year
  Sex: Male

DRUGS (9)
  1. ESZOPICLONE (ESZOPICLONE) [Suspect]
     Indication: INSOMNIA
     Dosage: ORAL
     Route: 048
     Dates: start: 20090302, end: 20090306
  2. SULPIRIDE [Concomitant]
  3. POLAPREZINC [Concomitant]
  4. GANATON [Concomitant]
  5. POLYFUL [Concomitant]
  6. VITAMIN E /00110501/ [Concomitant]
  7. NICERGOLINE [Concomitant]
  8. AFLOQUALONE [Concomitant]
  9. RETICOLAN [Concomitant]

REACTIONS (6)
  - GASTRIC POLYPS [None]
  - HIATUS HERNIA [None]
  - IRON DEFICIENCY ANAEMIA [None]
  - LOSS OF CONSCIOUSNESS [None]
  - OESOPHAGITIS HAEMORRHAGIC [None]
  - REFLUX OESOPHAGITIS [None]
